FAERS Safety Report 10266370 (Version 1)
Quarter: 2014Q2

REPORT INFORMATION
  Report Type: Spontaneous
  Country: FR (occurrence: FR)
  Receive Date: 20140628
  Receipt Date: 20140628
  Transmission Date: 20141212
  Serious: Yes (Other)
  Sender: FDA-Public Use
  Company Number: FR-ACCORD-024404

PATIENT
  Sex: Female

DRUGS (3)
  1. ETOPOSIDE [Suspect]
     Indication: GESTATIONAL TROPHOBLASTIC TUMOUR
     Dosage: APE2 REGIMEN: ETOPOSIDE (100 MG/M2/D) ON D1-3?APE2 STOPPED AFTER FOUR COURSES
  2. CISPLATIN [Suspect]
     Indication: GESTATIONAL TROPHOBLASTIC TUMOUR
     Dosage: APE2 REGIMEN: CISPLATIN (100 MG/M2/D) ON D1 AND THEN EVERY 21 DAYS.?APE2 STOPPED AFTER FOUR COURSES
  3. DACTINOMYCIN [Suspect]
     Indication: GESTATIONAL TROPHOBLASTIC TUMOUR
     Dosage: APE2 REGIMENE: ACTINOMYCIN D (0.3 MG/M2/D) ON D 1-3?APE2 STOPPED AFTER FOUR COURSES

REACTIONS (2)
  - Off label use [Unknown]
  - Ototoxicity [Unknown]
